FAERS Safety Report 7885584-3 (Version None)
Quarter: 2011Q4

REPORT INFORMATION
  Report Type: 
  Country: None (occurrence: None)
  Receive Date: 20111102
  Receipt Date: 20110627
  Transmission Date: 20120403
  Serious: No
  Sender: FDA-Public Use
  Company Number: US-AMGEN-USASP2011032649

PATIENT
  Sex: Female

DRUGS (7)
  1. CYMBALTA [Concomitant]
     Dosage: 60 MG, UNK
  2. METHOTREXATE [Concomitant]
     Dosage: 2.5 MG, UNK
  3. PREDNISONE [Concomitant]
     Dosage: 1 MG, UNK
  4. VITAMIN D [Concomitant]
     Dosage: 400 IU, UNK
  5. ENBREL [Suspect]
     Indication: PRODUCT USED FOR UNKNOWN INDICATION
     Dosage: 50 MG, QWK
     Route: 058
  6. ZOLOFT [Concomitant]
     Dosage: 25 MG, UNK
  7. PERCOCET [Concomitant]
     Dosage: 325 MG, UNK

REACTIONS (1)
  - NAUSEA [None]
